FAERS Safety Report 4551785-5 (Version None)
Quarter: 2005Q1

REPORT INFORMATION
  Report Type: 
  Country: None (occurrence: None)
  Receive Date: 20050111
  Receipt Date: 20050104
  Transmission Date: 20050727
  Serious: Yes (Hospitalization, Other)
  Sender: FDA-Public Use
  Company Number: 200411204BVD

PATIENT
  Age: 68 Year
  Sex: Male
  Weight: 70 kg

DRUGS (7)
  1. CIPROFLOXACIN [Suspect]
     Indication: CYSTITIS
     Dosage: 250 MG, BID, ORAL
     Route: 048
     Dates: start: 20041223
  2. CIPROFLOXACIN [Suspect]
     Indication: URINARY TRACT INFECTION
     Dosage: 250 MG, BID, ORAL
     Route: 048
     Dates: start: 20041223
  3. ACETAMINOPHEN [Concomitant]
  4. IBUPROFEN [Concomitant]
  5. ALLOPURINOL [Concomitant]
  6. PROSTAMED [Concomitant]
  7. ACE-HEMMER [Concomitant]

REACTIONS (15)
  - ANTITHROMBIN III DECREASED [None]
  - BLOOD PRESSURE DECREASED [None]
  - COLLAGEN DISORDER [None]
  - GENERAL PHYSICAL HEALTH DETERIORATION [None]
  - HYPONATRAEMIA [None]
  - LEUKOPENIA [None]
  - LUNG INFILTRATION [None]
  - MONARTHRITIS [None]
  - PETECHIAE [None]
  - PLEURAL EFFUSION [None]
  - PURPURA [None]
  - SOMNOLENCE [None]
  - THROMBOCYTOPENIA [None]
  - UROSEPSIS [None]
  - VASCULITIS [None]
